FAERS Safety Report 8309519-4 (Version None)
Quarter: 2012Q2

REPORT INFORMATION
  Report Type: 
  Country: None (occurrence: None)
  Receive Date: 20120425
  Receipt Date: 20120420
  Transmission Date: 20120825
  Serious: Yes (Other)
  Sender: FDA-Public Use
  Company Number: US-PFIZER INC-2012098280

PATIENT
  Sex: Female
  Weight: 64.399 kg

DRUGS (4)
  1. PAXIL [Concomitant]
     Indication: DEPRESSION
     Dosage: 20 MG, 2X/DAY
  2. CHANTIX [Suspect]
     Indication: SMOKING CESSATION THERAPY
     Dosage: 0.5 MG, 1X/DAY
     Route: 048
     Dates: start: 20120417, end: 20120419
  3. DIOVAN [Concomitant]
     Indication: HYPERTENSION
     Dosage: 100MG, DAILY
  4. LIPITOR [Concomitant]
     Indication: BLOOD CHOLESTEROL INCREASED
     Dosage: UNK

REACTIONS (5)
  - THINKING ABNORMAL [None]
  - ABNORMAL DREAMS [None]
  - SUICIDAL IDEATION [None]
  - DRUG INEFFECTIVE [None]
  - INSOMNIA [None]
